FAERS Safety Report 9063080 (Version 1)
Quarter: 2013Q1

REPORT INFORMATION
  Report Type: Spontaneous
  Country: KR (occurrence: KR)
  Receive Date: 20130213
  Receipt Date: 20130213
  Transmission Date: 20140127
  Serious: No
  Sender: FDA-Public Use
  Company Number: KR-JNJFOC-20130200383

PATIENT
  Age: 39 Year
  Sex: Female

DRUGS (1)
  1. DUROGESIC D-TRANS [Suspect]
     Indication: PAIN
     Dosage: TOOK 1/2 OF DUROGESIC DTRANS 12.5UG/HR
     Route: 062
     Dates: start: 20130128

REACTIONS (3)
  - Nausea [Not Recovered/Not Resolved]
  - Insomnia [Not Recovered/Not Resolved]
  - Drug administration error [Unknown]
